FAERS Safety Report 8436945-5 (Version None)
Quarter: 2012Q2

REPORT INFORMATION
  Report Type: 
  Country: None (occurrence: None)
  Receive Date: 20120614
  Receipt Date: 20120209
  Transmission Date: 20120825
  Serious: No
  Sender: FDA-Public Use
  Company Number: US-AMGEN-USASP2012008856

PATIENT
  Age: 63 Year
  Sex: Female

DRUGS (6)
  1. ASPIRIN [Concomitant]
  2. POMALIDOMIDE [Concomitant]
     Dosage: UNK UNK, QD
  3. ARANESP [Suspect]
     Indication: MULTIPLE MYELOMA
     Dates: start: 20120201
  4. CLARITHROMYCIN [Concomitant]
     Dosage: UNK UNK, BID
  5. DEXAMETHASONE [Concomitant]
     Dosage: 1 MG, QWK
  6. SULFAMETHOXAZOLE [Concomitant]
     Dosage: UNK UNK, QD

REACTIONS (5)
  - WEIGHT DECREASED [None]
  - NAUSEA [None]
  - PYREXIA [None]
  - FATIGUE [None]
  - HYPOPHAGIA [None]
